FAERS Safety Report 11618508 (Version 3)
Quarter: 2015Q4

REPORT INFORMATION
  Report Type: Report from Study
  Country: AT (occurrence: AT)
  Receive Date: 20151012
  Receipt Date: 20151026
  Transmission Date: 20160304
  Serious: Yes (Hospitalization)
  Sender: FDA-Public Use
  Company Number: AT-ROCHE-1643615

PATIENT
  Age: 76 Year
  Sex: Female
  Weight: 85 kg

DRUGS (13)
  1. ALLOPURINOL. [Concomitant]
     Active Substance: ALLOPURINOL
     Dosage: INDICATION- UREA PROHYLAXIS
     Route: 048
  2. MAGNOSOLV [Concomitant]
     Dosage: INDICATION - MAGNESIUM SHORTAGE
     Route: 048
  3. LOSEC [Concomitant]
     Active Substance: OMEPRAZOLE
     Dosage: INDICATION - STOMACH PROPHYLAXIS
     Route: 048
  4. URSOFALK [Concomitant]
     Active Substance: URSODIOL
     Indication: CHOLELITHIASIS
     Dosage: SELECT IF ONGOING=YES
     Route: 048
  5. THYREX [Concomitant]
     Active Substance: LEVOTHYROXINE SODIUM
     Indication: HYPOTHYROIDISM
     Dosage: SELECT IF ONGOING=YES DOSE UNIT=UG
     Route: 048
  6. PREDNISOLON [Concomitant]
     Active Substance: PREDNISOLONE
     Dosage: INDICATION AUTIMMUNIC DISEASE
     Route: 048
  7. BISOPROLOL [Concomitant]
     Active Substance: BISOPROLOL
     Indication: HYPERTENSION
     Dosage: SELECT IF ONGOING=YES
     Route: 048
  8. VALTREX [Concomitant]
     Active Substance: VALACYCLOVIR HYDROCHLORIDE
     Dosage: SELECT IF ONGOING=YES
     Route: 048
  9. OBINUTUZUMAB [Suspect]
     Active Substance: OBINUTUZUMAB
     Indication: CHRONIC LYMPHOCYTIC LEUKAEMIA
     Dosage: THE LAST DOSE PRIOR TO THE EVENT WAS ADMINISTERED ON 02/OCT/2015
     Route: 042
     Dates: start: 20151001
  10. CHLORAMBUCIL [Suspect]
     Active Substance: CHLORAMBUCIL
     Indication: CHRONIC LYMPHOCYTIC LEUKAEMIA
     Dosage: THE LAST DOSE PRIOR TO THE THROMBOSIS SUSPECTED WAS ADMINISTERED ON 01/OCT/2015
     Route: 048
     Dates: start: 20151001
  11. CANDESARTAN CILEXETIL AND HYDROCHLOROTHIAZIDE [Concomitant]
     Active Substance: CANDESARTAN CILEXETIL\HYDROCHLOROTHIAZIDE
     Indication: HYPERTENSION
     Route: 048
  12. LASIX [Concomitant]
     Active Substance: FUROSEMIDE
     Indication: ATRIAL FIBRILLATION
     Dosage: SELECT IF ONGOING=YES
     Route: 048
  13. LIDAPRIM FORTE [Concomitant]
     Indication: BACTERIAL INFECTION
     Dosage: SELECT IF ONGOING=YES DOSE UNIT=TABLET
     Route: 048

REACTIONS (1)
  - Thrombophlebitis [Recovered/Resolved]

NARRATIVE: CASE EVENT DATE: 20151004
